FAERS Safety Report 8112336-1 (Version None)
Quarter: 2012Q1

REPORT INFORMATION
  Report Type: 
  Country: None (occurrence: None)
  Receive Date: 20120203
  Receipt Date: 20111209
  Transmission Date: 20120608
  Serious: No
  Sender: FDA-Public Use
  Company Number: US-ASTRAZENECA-2011SE74875

PATIENT
  Age: 54 Year
  Sex: Female

DRUGS (11)
  1. HYDROCODONE BITARTRATE AND ACETAMINOPHEN [Concomitant]
  2. IBUPROFEN [Concomitant]
  3. AMBIEN [Concomitant]
  4. CAFAZOLIN [Concomitant]
  5. XYZAL [Concomitant]
  6. FLEXERIL [Concomitant]
  7. VANDETANIB [Suspect]
     Indication: THYROID CANCER
     Route: 048
  8. PENICILLIN G BENZATHINE [Concomitant]
  9. LEVOXYL [Concomitant]
  10. FENTANYL CITRATE [Concomitant]
  11. TRAMADOL HCL [Concomitant]

REACTIONS (5)
  - HEPATIC ENZYME INCREASED [None]
  - FEELING HOT [None]
  - HEADACHE [None]
  - PHOTOPHOBIA [None]
  - ACNE [None]
